FAERS Safety Report 8985964 (Version 1)
Quarter: 2012Q4

REPORT INFORMATION
  Report Type: 
  Country: PL (occurrence: PL)
  Receive Date: 20121226
  Receipt Date: 20121226
  Transmission Date: 20130627
  Serious: Yes (Other)
  Sender: FDA-Public Use
  Company Number: PL-ASTRAZENECA-2012SE94383

PATIENT
  Age: 24472 Day
  Sex: Female

DRUGS (3)
  1. ANASTROZOLE [Suspect]
     Indication: BREAST CANCER
     Route: 048
     Dates: start: 200507, end: 200605
  2. TAMOXIFENE [Suspect]
     Indication: BREAST CANCER
     Route: 048
     Dates: start: 200307, end: 200507
  3. FASLODEX [Suspect]
     Indication: BREAST CANCER
     Route: 030
     Dates: start: 200901, end: 201005

REACTIONS (4)
  - Metastases to liver [Unknown]
  - Metastases to bone [Unknown]
  - Endometrial hypertrophy [Unknown]
  - Off label use [Recovered/Resolved]
